FAERS Safety Report 24096148 (Version 1)
Quarter: 2024Q3

REPORT INFORMATION
  Report Type: Spontaneous
  Country: US (occurrence: US)
  Receive Date: 20240716
  Receipt Date: 20240716
  Transmission Date: 20241017
  Serious: No
  Sender: AMGEN
  Company Number: US-AMGEN-USASP2024140360

PATIENT
  Age: 40 Year
  Sex: Female

DRUGS (1)
  1. TEPEZZA [Suspect]
     Active Substance: TEPROTUMUMAB-TRBW
     Indication: Endocrine ophthalmopathy
     Dosage: UNK UNK (1), Q3WK (FOR 8 INFUSIONS)
     Route: 042
     Dates: start: 20240318, end: 20240712

REACTIONS (1)
  - Tinnitus [Unknown]
